FAERS Safety Report 11448532 (Version 2)
Quarter: 2015Q4

REPORT INFORMATION
  Report Type: Report from Study
  Country: TW (occurrence: TW)
  Receive Date: 20150902
  Receipt Date: 20151001
  Transmission Date: 20160304
  Serious: Yes (Hospitalization, Other)
  Sender: FDA-Public Use
  Company Number: TW-INCYTE CORPORATION-2015IN003779

PATIENT
  Age: 80 Year
  Sex: Male
  Weight: 60 kg

DRUGS (7)
  1. JAKAFI [Suspect]
     Active Substance: RUXOLITINIB
     Indication: MYELOFIBROSIS
     Dosage: 15 MG, UNK
     Route: 048
     Dates: start: 20130521
  2. REPAGLINIDE. [Concomitant]
     Active Substance: REPAGLINIDE
     Indication: DIABETES MELLITUS
     Dosage: 1 MG, TID
     Route: 048
     Dates: start: 201303
  3. TAMSULOSIN [Concomitant]
     Active Substance: TAMSULOSIN
     Indication: BENIGN PROSTATIC HYPERPLASIA
     Dosage: 0.4 MG, HS
     Route: 048
     Dates: start: 201305
  4. MECOBALAMIN [Concomitant]
     Active Substance: METHYLCOBALAMIN
     Dosage: 500 UG, TID
     Route: 048
     Dates: start: 201410
  5. AMLODIPINE [Concomitant]
     Active Substance: AMLODIPINE BESYLATE
     Indication: HYPERTENSION
     Dosage: 5 MG, QD
     Route: 048
     Dates: start: 200801
  6. MECOBALAMIN [Concomitant]
     Active Substance: METHYLCOBALAMIN
     Indication: PRODUCT USED FOR UNKNOWN INDICATION
     Dosage: 500 UG, TID
     Route: 048
     Dates: start: 201410
  7. JAKAFI [Suspect]
     Active Substance: RUXOLITINIB
     Dosage: 15 MG (3 TABLET), BID
     Route: 048
     Dates: start: 20150803

REACTIONS (4)
  - Pneumonia klebsiella [Unknown]
  - Urinary tract infection [Recovered/Resolved]
  - Haemoglobin decreased [Unknown]
  - Blast cell count increased [Unknown]

NARRATIVE: CASE EVENT DATE: 20150724
